FAERS Safety Report 5692111-8 (Version None)
Quarter: 2008Q1

REPORT INFORMATION
  Report Type: 
  Country: None (occurrence: None)
  Receive Date: 20080331
  Receipt Date: 20080313
  Transmission Date: 20080703
  Serious: Yes (Hospitalization)
  Sender: FDA-Public Use
  Company Number: S08-UKI-01040-01

PATIENT
  Age: 31 Year
  Sex: Male

DRUGS (4)
  1. CITALOPRAM HYDROBROMIDE [Suspect]
     Dosage: 600 MG ONCE PO
     Route: 048
     Dates: start: 20080310, end: 20080310
  2. CITALOPRAM HYDROBROMIDE [Suspect]
  3. ZOPICLONE [Suspect]
     Dosage: 205 MG ONCE PO
     Route: 048
     Dates: start: 20080310
  4. PROCYCLIDINE HYDROCHLORIDE 2MG TAB [Suspect]
     Dosage: 100 MG ONCE PO
     Route: 048
     Dates: start: 20080310

REACTIONS (7)
  - BRADYCARDIA [None]
  - ENDOTRACHEAL INTUBATION COMPLICATION [None]
  - HYPERTENSION [None]
  - HYPOTENSION [None]
  - MULTIPLE DRUG OVERDOSE [None]
  - TACHYCARDIA [None]
  - VOMITING [None]
